FAERS Safety Report 7807957-7 (Version None)
Quarter: 2011Q4

REPORT INFORMATION
  Report Type: 
  Country: None (occurrence: None)
  Receive Date: 20111011
  Receipt Date: 20111011
  Transmission Date: 20120403
  Serious: Yes (Hospitalization, Other)
  Sender: FDA-Public Use
  Company Number: None

PATIENT
  Age: 40 Year
  Sex: Female
  Weight: 113.39 kg

DRUGS (1)
  1. LEVAQUIN(GENERIC) [Suspect]
     Indication: SINUSITIS
     Route: 048
     Dates: start: 20110922, end: 20111001

REACTIONS (12)
  - BURNING SENSATION [None]
  - TINNITUS [None]
  - GAIT DISTURBANCE [None]
  - CARDIAC DISORDER [None]
  - PARAESTHESIA [None]
  - PLANTAR FASCIITIS [None]
  - COSTOCHONDRITIS [None]
  - CONDITION AGGRAVATED [None]
  - CHEST PAIN [None]
  - NAUSEA [None]
  - DIARRHOEA [None]
  - PAIN [None]
